FAERS Safety Report 23147677 (Version 1)
Quarter: 2023Q4

REPORT INFORMATION
  Report Type: Spontaneous
  Country: FR (occurrence: FR)
  Receive Date: 20231106
  Receipt Date: 20231106
  Transmission Date: 20240109
  Serious: Yes (Hospitalization)
  Sender: FDA-Public Use
  Company Number: None

PATIENT
  Age: 96 Year
  Sex: Male
  Weight: 66 kg

DRUGS (12)
  1. AMOXICILLIN TRIHYDRATE [Suspect]
     Active Substance: AMOXICILLIN
     Indication: Prostatitis
     Dosage: 3 G QD
     Route: 048
     Dates: start: 20230407, end: 20230413
  2. CALCIPARINE [Suspect]
     Active Substance: HEPARIN CALCIUM
     Indication: Atrial fibrillation
     Dosage: 12500 IU/0.5 ML
     Route: 058
     Dates: start: 20230406, end: 20230410
  3. ELIQUIS [Suspect]
     Active Substance: APIXABAN
     Indication: Atrial fibrillation
     Dosage: 5 MG QD
     Route: 048
     Dates: start: 20230410, end: 20230424
  4. AMIODARONE [Concomitant]
     Active Substance: AMIODARONE
     Indication: Atrial fibrillation
     Dosage: UNK
     Route: 065
  5. ESOMEPRAZOLE [Concomitant]
     Active Substance: ESOMEPRAZOLE
     Indication: Product used for unknown indication
     Dosage: UNK
     Route: 065
  6. FUROSEMIDE [Concomitant]
     Active Substance: FUROSEMIDE
     Indication: Product used for unknown indication
     Dosage: UNK
     Route: 065
  7. POLYETHYLENE GLYCOLS [Concomitant]
     Active Substance: POLYETHYLENE GLYCOLS
     Indication: Product used for unknown indication
     Dosage: UNK
     Route: 065
  8. NEBIVOLOL [Concomitant]
     Active Substance: NEBIVOLOL
     Indication: Product used for unknown indication
     Dosage: UNK
     Route: 065
  9. OXAZEPAM [Concomitant]
     Active Substance: OXAZEPAM
     Indication: Product used for unknown indication
     Dosage: UNK
     Route: 065
  10. TAMSULOSIN [Concomitant]
     Active Substance: TAMSULOSIN
     Indication: Product used for unknown indication
     Dosage: UNK
     Route: 065
  11. XARELTO [Concomitant]
     Active Substance: RIVAROXABAN
     Indication: Product used for unknown indication
     Dosage: UNK
     Route: 065
     Dates: start: 20230424
  12. XARELTO [Concomitant]
     Active Substance: RIVAROXABAN
     Dosage: UNK
     Route: 065
     Dates: end: 20230406

REACTIONS (2)
  - Eczema [Recovered/Resolved]
  - Pruritus [Recovered/Resolved]

NARRATIVE: CASE EVENT DATE: 20230401
